FAERS Safety Report 14991870 (Version 2)
Quarter: 2018Q3

REPORT INFORMATION
  Report Type: Spontaneous
  Country: US (occurrence: US)
  Receive Date: 20180608
  Receipt Date: 20180924
  Transmission Date: 20181010
  Serious: Yes (Hospitalization)
  Sender: FDA-Public Use
  Company Number: US-ACTELION-A-NJ2017-159430

PATIENT
  Age: 6 Year
  Sex: Male
  Weight: 17.3 kg

DRUGS (10)
  1. SILDENAFIL. [Concomitant]
     Active Substance: SILDENAFIL
     Dosage: 15 MG, TID
     Dates: start: 201703
  2. SILDENAFIL. [Concomitant]
     Active Substance: SILDENAFIL
     Dosage: 17 MG, TID
  3. REMODULIN [Concomitant]
     Active Substance: TREPROSTINIL
     Dosage: 83.6 NG/KG, PER MIN
     Dates: start: 201706
  4. OXYMETAZOLINE [Concomitant]
     Active Substance: OXYMETAZOLINE
     Dosage: 3 SPRAYS TID
     Route: 045
     Dates: start: 20171110, end: 20171111
  5. TRACLEER [Suspect]
     Active Substance: BOSENTAN
     Dosage: 31.25 MG, BID
     Route: 048
     Dates: start: 20171110
  6. CETIRIZINE [Concomitant]
     Active Substance: CETIRIZINE HYDROCHLORIDE
     Dosage: 10 MG, QD
  7. TRACLEER [Suspect]
     Active Substance: BOSENTAN
     Indication: PULMONARY ARTERIAL HYPERTENSION
     Dosage: 31.25 MG, BID
     Route: 048
     Dates: start: 201607
  8. REMODULIN [Concomitant]
     Active Substance: TREPROSTINIL
     Dosage: 157 NG/KG, PER MIN
  9. TRACLEER [Suspect]
     Active Substance: BOSENTAN
     Dosage: 31.25 MG, BID
     Route: 048
     Dates: start: 20170628, end: 20170630
  10. TYVASO [Concomitant]
     Active Substance: TREPROSTINIL
     Dosage: 9 INH/DOSE
     Dates: start: 201701

REACTIONS (13)
  - Restrictive pulmonary disease [Unknown]
  - Adenotonsillectomy [Unknown]
  - Fatigue [Unknown]
  - Epistaxis [Unknown]
  - Liver function test abnormal [Recovering/Resolving]
  - Abdominal pain upper [Unknown]
  - Erection increased [Unknown]
  - Sleep apnoea syndrome [Unknown]
  - Alanine aminotransferase increased [Recovering/Resolving]
  - Aspartate aminotransferase increased [Recovering/Resolving]
  - Pulmonary arterial pressure increased [Unknown]
  - Drug ineffective [Unknown]
  - Hypoxia [Unknown]

NARRATIVE: CASE EVENT DATE: 201701
